FAERS Safety Report 5564930-X (Version None)
Quarter: 2007Q4

REPORT INFORMATION
  Report Type: 
  Country: None (occurrence: None)
  Receive Date: 20071218
  Receipt Date: 20071210
  Transmission Date: 20080405
  Serious: Yes (Hospitalization)
  Sender: FDA-Public Use
  Company Number: A0699380A

PATIENT
  Sex: Female
  Weight: 2.6 kg

DRUGS (3)
  1. VENTOLIN [Suspect]
     Indication: ASTHMA
     Dates: start: 20061201
  2. SERETIDE [Suspect]
     Indication: ASTHMA
  3. LEVOTHYROXINE SODIUM [Concomitant]
     Indication: HYPOTHYROIDISM
     Dosage: 175MCG PER DAY

REACTIONS (3)
  - DRUG EXPOSURE DURING PREGNANCY [None]
  - JAUNDICE NEONATAL [None]
  - PREMATURE BABY [None]
